FAERS Safety Report 5729588-5 (Version None)
Quarter: 2008Q2

REPORT INFORMATION
  Report Type: 
  Country: None (occurrence: None)
  Receive Date: 20080506
  Receipt Date: 20080430
  Transmission Date: 20081010
  Serious: Yes (Other)
  Sender: FDA-Public Use
  Company Number: US-MERCK-0805USA00139

PATIENT
  Age: 50 Year
  Sex: Female

DRUGS (1)
  1. MAXALT [Suspect]
     Route: 048

REACTIONS (3)
  - BRAIN STEM INFARCTION [None]
  - CEREBRAL VASOCONSTRICTION [None]
  - INTENTIONAL DRUG MISUSE [None]
